FAERS Safety Report 5831609-6 (Version None)
Quarter: 2008Q3

REPORT INFORMATION
  Report Type: 
  Country: None (occurrence: None)
  Receive Date: 20080801
  Receipt Date: 20080723
  Transmission Date: 20090109
  Serious: Yes (Other)
  Sender: FDA-Public Use
  Company Number: JP-PFIZER INC-2008062223

PATIENT
  Age: 65 Year
  Sex: Male

DRUGS (8)
  1. CABASER [Suspect]
     Indication: PARKINSON'S DISEASE
     Route: 048
  2. SELEGILINE HYDROCHLORIDE [Concomitant]
     Route: 048
  3. AMANTADINE HCL [Concomitant]
     Route: 048
  4. L-DOPA [Concomitant]
     Route: 048
  5. BROMOCRIPTINE MESYLATE [Concomitant]
     Route: 048
  6. TRIHEXYPHENIDYL HYDROCHLORIDE [Concomitant]
     Route: 048
  7. PERGOLIDE MESYLATE [Concomitant]
     Route: 048
  8. DROXIDOPA [Concomitant]
     Route: 048

REACTIONS (1)
  - POSTURE ABNORMAL [None]
